FAERS Safety Report 23103210 (Version 1)
Quarter: 2023Q4

REPORT INFORMATION
  Report Type: Spontaneous
  Country: US (occurrence: None)
  Receive Date: 20231022
  Receipt Date: 20231022
  Transmission Date: 20240109
  Serious: Yes (Hospitalization)
  Sender: FDA-Public Use
  Company Number: None

PATIENT
  Age: 68 Year
  Sex: Male

DRUGS (1)
  1. EMPAGLIFLOZIN [Suspect]
     Active Substance: EMPAGLIFLOZIN
     Dates: start: 20211228, end: 20230418

REACTIONS (9)
  - Urosepsis [None]
  - Acute kidney injury [None]
  - Cough [None]
  - Multiple allergies [None]
  - Flank pain [None]
  - Pain [None]
  - Asthenia [None]
  - Chills [None]
  - Condition aggravated [None]

NARRATIVE: CASE EVENT DATE: 20230418
